FAERS Safety Report 12778213 (Version 1)
Quarter: 2016Q3

REPORT INFORMATION
  Report Type: Spontaneous
  Country: US (occurrence: US)
  Receive Date: 20160925
  Receipt Date: 20160925
  Transmission Date: 20161109
  Serious: Yes (Hospitalization, Other)
  Sender: FDA-Public Use
  Company Number: US-AMGEN-USASP2016128850

PATIENT
  Sex: Male

DRUGS (3)
  1. VELCADE [Concomitant]
     Active Substance: BORTEZOMIB
     Dosage: UNK
  2. KYPROLIS [Suspect]
     Active Substance: CARFILZOMIB
     Indication: PRODUCT USED FOR UNKNOWN INDICATION
     Dosage: UNK
     Route: 065
  3. DEXAMETHASONE. [Concomitant]
     Active Substance: DEXAMETHASONE
     Dosage: UNK

REACTIONS (8)
  - Feeling abnormal [Unknown]
  - Upper limb fracture [Unknown]
  - Somnolence [Unknown]
  - Pain [Unknown]
  - Cervical vertebral fracture [Unknown]
  - Vomiting [Unknown]
  - Drug ineffective [Unknown]
  - Sternal fracture [Unknown]

NARRATIVE: CASE EVENT DATE: 201511
